FAERS Safety Report 22290489 (Version 1)
Quarter: 2023Q2

REPORT INFORMATION
  Report Type: Spontaneous
  Country: US (occurrence: US)
  Receive Date: 20230505
  Receipt Date: 20230505
  Transmission Date: 20230722
  Serious: No
  Sender: FDA-Public Use
  Company Number: US-002147023-NVSC2023US101051

PATIENT
  Age: 34 Year
  Sex: Male

DRUGS (9)
  1. ZOFRAN [Suspect]
     Active Substance: ONDANSETRON HYDROCHLORIDE
     Indication: Malignant melanoma
     Dosage: UNK
     Route: 065
  2. ZOFRAN [Suspect]
     Active Substance: ONDANSETRON HYDROCHLORIDE
     Indication: Cholangiocarcinoma
  3. ZOFRAN [Suspect]
     Active Substance: ONDANSETRON HYDROCHLORIDE
     Indication: Metastases to liver
  4. LENVIMA [Suspect]
     Active Substance: LENVATINIB
     Indication: Malignant melanoma
     Dosage: 20 MG, QD
     Route: 048
     Dates: start: 20221018
  5. LENVIMA [Suspect]
     Active Substance: LENVATINIB
     Indication: Cholangiocarcinoma
  6. LENVIMA [Suspect]
     Active Substance: LENVATINIB
     Indication: Metastases to liver
  7. TEMODAR [Suspect]
     Active Substance: TEMOZOLOMIDE
     Indication: Malignant melanoma
     Route: 065
  8. TEMODAR [Suspect]
     Active Substance: TEMOZOLOMIDE
     Indication: Cholangiocarcinoma
  9. TEMODAR [Suspect]
     Active Substance: TEMOZOLOMIDE
     Indication: Metastases to liver

REACTIONS (1)
  - Constipation [Unknown]
